FAERS Safety Report 10374748 (Version 1)
Quarter: 2014Q3

REPORT INFORMATION
  Report Type: Spontaneous
  Country: KR (occurrence: KR)
  Receive Date: 20140811
  Receipt Date: 20140811
  Transmission Date: 20150326
  Serious: No
  Sender: FDA-Public Use
  Company Number: KR-JNJFOC-20140718963

PATIENT

DRUGS (1)
  1. DURAGESIC [Suspect]
     Active Substance: FENTANYL
     Indication: PRODUCT USED FOR UNKNOWN INDICATION
     Dosage: HALF A PATCH OF 25MCG
     Route: 065

REACTIONS (2)
  - Drug prescribing error [Unknown]
  - Wrong technique in drug usage process [Unknown]
